FAERS Safety Report 12450851 (Version 4)
Quarter: 2016Q3

REPORT INFORMATION
  Report Type: Spontaneous
  Country: US (occurrence: US)
  Receive Date: 20160609
  Receipt Date: 20160907
  Transmission Date: 20161109
  Serious: No
  Sender: FDA-Public Use
  Company Number: US-JNJFOC-20160600532

PATIENT
  Sex: Female
  Weight: 43.09 kg

DRUGS (3)
  1. DURAGESIC [Suspect]
     Active Substance: FENTANYL
     Indication: SPINAL CORD COMPRESSION
     Dosage: 100 MCG AND 50 MCG
     Route: 062
     Dates: start: 2001
  2. VICODIN [Concomitant]
     Active Substance: ACETAMINOPHEN\HYDROCODONE BITARTRATE
     Indication: PRODUCT USED FOR UNKNOWN INDICATION
     Route: 065
  3. DURAGESIC [Suspect]
     Active Substance: FENTANYL
     Indication: SPINAL CORD COMPRESSION
     Route: 062

REACTIONS (10)
  - Conversion disorder [Unknown]
  - Nervousness [Unknown]
  - Drug dose omission [Unknown]
  - Drug effect decreased [Unknown]
  - Wrong technique in product usage process [Unknown]
  - Body height decreased [Not Recovered/Not Resolved]
  - Pain [Not Recovered/Not Resolved]
  - Immobile [Not Recovered/Not Resolved]
  - Kyphosis [Not Recovered/Not Resolved]
  - Product packaging issue [Unknown]
